FAERS Safety Report 15900684 (Version 6)
Quarter: 2019Q1

REPORT INFORMATION
  Report Type: Report from Study
  Country: CO (occurrence: CO)
  Receive Date: 20190201
  Receipt Date: 20190329
  Transmission Date: 20190417
  Serious: Yes (Other)
  Sender: FDA-Public Use
  Company Number: CO-JNJFOC-20190136098

PATIENT
  Age: 52 Year
  Sex: Female
  Weight: 64 kg

DRUGS (2)
  1. SIMPONI [Suspect]
     Active Substance: GOLIMUMAB
     Indication: ANKYLOSING SPONDYLITIS
     Route: 058
     Dates: start: 20190222
  2. SIMPONI [Suspect]
     Active Substance: GOLIMUMAB
     Indication: ANKYLOSING SPONDYLITIS
     Route: 058
     Dates: start: 20170808, end: 20181013

REACTIONS (12)
  - Cellulitis [Not Recovered/Not Resolved]
  - Off label use [Unknown]
  - Arthritis [Not Recovered/Not Resolved]
  - Feeling hot [Not Recovered/Not Resolved]
  - Product dose omission [Unknown]
  - Incorrect dose administered [Unknown]
  - Arrhythmia [Not Recovered/Not Resolved]
  - Joint stiffness [Not Recovered/Not Resolved]
  - Arthralgia [Not Recovered/Not Resolved]
  - Diarrhoea [Not Recovered/Not Resolved]
  - Thermal burn [Not Recovered/Not Resolved]
  - Hypertension [Recovering/Resolving]

NARRATIVE: CASE EVENT DATE: 2018
